FAERS Safety Report 17206835 (Version 1)
Quarter: 2019Q4

REPORT INFORMATION
  Report Type: Spontaneous
  Country: CH (occurrence: CH)
  Receive Date: 20191227
  Receipt Date: 20191227
  Transmission Date: 20200122
  Serious: Yes (Hospitalization)
  Sender: FDA-Public Use
  Company Number: CH-ELI_LILLY_AND_COMPANY-CH201912010613

PATIENT
  Age: 54 Year
  Sex: Female
  Weight: 85.9 kg

DRUGS (20)
  1. PALONOSETRON. [Concomitant]
     Active Substance: PALONOSETRON HYDROCHLORIDE
     Dosage: .25 MG, UNK
     Dates: start: 20191106, end: 20191106
  2. MOVICOL [MACROGOL 3350;POTASSIUM CHLORIDE;SOD [Concomitant]
     Dosage: 1 DOSAGE FORM, UNK
     Route: 048
  3. KEYTRUDA [Suspect]
     Active Substance: PEMBROLIZUMAB
     Indication: LUNG ADENOCARCINOMA
     Dosage: 200 MG, UNK
     Route: 041
     Dates: start: 20191106, end: 20191106
  4. CARBOPLATIN. [Suspect]
     Active Substance: CARBOPLATIN
     Indication: LUNG ADENOCARCINOMA
     Dosage: 1 DOSAGE FORM, UNK
     Route: 041
     Dates: start: 20191015, end: 20191015
  5. HYDROCORTONE [HYDROCORTISONE] [Concomitant]
     Dosage: 50 MG, UNK
     Route: 048
     Dates: start: 20191115
  6. CIPRALEX [Concomitant]
     Active Substance: ESCITALOPRAM OXALATE
     Dosage: 10 MG, UNK
     Route: 048
  7. ALIMTA [Suspect]
     Active Substance: PEMETREXED DISODIUM
     Dosage: 400 MG/M2, UNK
     Route: 041
     Dates: start: 20191106, end: 20191106
  8. FORTECORTIN [DEXAMETHASONE] [Concomitant]
     Active Substance: DEXAMETHASONE
     Dosage: 12 MG, UNK
     Dates: start: 20191106, end: 20191106
  9. VITAMIN D3 [Concomitant]
     Active Substance: CHOLECALCIFEROL
     Dosage: 1 DOSAGE FORM, UNK
     Route: 048
  10. ALIMTA [Suspect]
     Active Substance: PEMETREXED DISODIUM
     Indication: LUNG ADENOCARCINOMA
     Dosage: 1 DOSAGE FORM, UNK
     Route: 041
     Dates: start: 20191015, end: 20191015
  11. VITARUBIN [CYANOCOBALAMIN] [Concomitant]
     Dosage: UNK
     Route: 048
     Dates: start: 201910
  12. EMEND [Concomitant]
     Active Substance: APREPITANT
     Dosage: 125 MG, UNK
     Dates: start: 20191106, end: 20191106
  13. IMOVANE [Concomitant]
     Active Substance: ZOPICLONE
     Dosage: 7.5 MG, UNK
     Route: 048
  14. OXYCONTIN [Concomitant]
     Active Substance: OXYCODONE HYDROCHLORIDE
     Dosage: 40 MG, UNK
     Route: 048
     Dates: start: 20191104
  15. CARBOPLATIN. [Suspect]
     Active Substance: CARBOPLATIN
     Dosage: 368 MG, UNK
     Route: 041
     Dates: start: 20191106, end: 20191106
  16. ACIDUM FOLICUM STREULI [Concomitant]
     Active Substance: FOLIC ACID
     Dosage: UNK
     Route: 048
     Dates: start: 201910
  17. EMEND [Concomitant]
     Active Substance: APREPITANT
     Dosage: 80 MG, UNK
     Dates: start: 20191107, end: 20191108
  18. HYDROCORTONE [HYDROCORTISONE] [Concomitant]
     Dosage: 30 MG, UNK
     Route: 048
  19. SURMONTIL [Concomitant]
     Active Substance: TRIMIPRAMINE MALEATE
     Dosage: 100 MG, UNK
     Route: 048
  20. OXYCONTIN [Concomitant]
     Active Substance: OXYCODONE HYDROCHLORIDE
     Dosage: 20 MG, UNK
     Route: 048
     Dates: start: 20191104

REACTIONS (6)
  - Haemorrhagic erosive gastritis [Recovering/Resolving]
  - Pancytopenia [Recovering/Resolving]
  - Oesophageal candidiasis [Recovering/Resolving]
  - Acute kidney injury [Recovered/Resolved]
  - Colitis [Recovering/Resolving]
  - Mucosal inflammation [Recovering/Resolving]

NARRATIVE: CASE EVENT DATE: 20191015
